FAERS Safety Report 8474600-6 (Version None)
Quarter: 2012Q2

REPORT INFORMATION
  Report Type: 
  Country: None (occurrence: None)
  Receive Date: 20120628
  Receipt Date: 20120619
  Transmission Date: 20120825
  Serious: Yes (Hospitalization)
  Sender: FDA-Public Use
  Company Number: FR-JNJFOC-20120610362

PATIENT
  Sex: Male
  Weight: 42.3 kg

DRUGS (4)
  1. REMICADE [Suspect]
     Route: 042
     Dates: start: 20120519
  2. ANTIBIOTICS [Concomitant]
     Indication: CROHN'S DISEASE
  3. REMICADE [Suspect]
     Indication: CROHN'S DISEASE
     Route: 042
     Dates: start: 20101123
  4. REMICADE [Suspect]
     Route: 042
     Dates: start: 20120224

REACTIONS (2)
  - CROHN'S DISEASE [None]
  - ILEAL STENOSIS [None]
